FAERS Safety Report 6068696-9 (Version None)
Quarter: 2009Q1

REPORT INFORMATION
  Report Type: 
  Country: None (occurrence: None)
  Receive Date: 20090206
  Receipt Date: 20090128
  Transmission Date: 20090719
  Serious: Yes (Hospitalization)
  Sender: FDA-Public Use
  Company Number: B0556353A

PATIENT
  Age: 85 Year
  Sex: Female

DRUGS (10)
  1. CEFUROXIME [Suspect]
     Route: 048
     Dates: start: 20080225, end: 20081030
  2. CIFLOX [Suspect]
     Route: 048
     Dates: start: 20080225, end: 20081017
  3. LAMISIL [Suspect]
     Dosage: 250MG PER DAY
     Route: 048
     Dates: start: 20080209, end: 20081017
  4. DIGOXIN [Concomitant]
     Dosage: 1UNIT PER DAY
  5. KARDEGIC [Concomitant]
     Dosage: 75MG PER DAY
  6. NEURONTIN [Concomitant]
     Dosage: 600MG THREE TIMES PER DAY
  7. LAROXYL [Concomitant]
     Route: 048
  8. COVERSYL [Concomitant]
     Dosage: 2MG PER DAY
     Dates: start: 20080201
  9. VANCOMYCIN [Concomitant]
     Indication: INFECTED SKIN ULCER
     Dates: start: 20070601, end: 20080201
  10. TIENAM [Concomitant]
     Indication: INFECTED SKIN ULCER
     Dates: start: 20070601, end: 20080201

REACTIONS (2)
  - COAGULATION FACTOR DECREASED [None]
  - THROMBOCYTOPENIA [None]
